FAERS Safety Report 24140511 (Version 1)
Quarter: 2024Q3

REPORT INFORMATION
  Report Type: Spontaneous
  Country: IT (occurrence: None)
  Receive Date: 20240726
  Receipt Date: 20240726
  Transmission Date: 20241016
  Serious: Yes (Other)
  Sender: ACCORD
  Company Number: IT-Accord-437164

PATIENT
  Age: 41 Year
  Sex: Female

DRUGS (5)
  1. LEVOTHYROXINE [Suspect]
     Active Substance: LEVOTHYROXINE\LEVOTHYROXINE SODIUM
     Indication: Hypopituitarism
  2. HYDROCORTISONE [Suspect]
     Active Substance: HYDROCORTISONE\HYDROCORTISONE ACETATE
     Indication: Hypopituitarism
  3. ESTROGEN NOS [Suspect]
     Active Substance: ESTROGENS
     Indication: Hypopituitarism
  4. SOMATROPIN [Suspect]
     Active Substance: SOMATROPIN
     Indication: Hypopituitarism
  5. PROGESTERONE [Suspect]
     Active Substance: PROGESTERONE
     Indication: Hypopituitarism

REACTIONS (1)
  - Graves^ disease [Recovering/Resolving]
